FAERS Safety Report 4869250-4 (Version None)
Quarter: 2005Q4

REPORT INFORMATION
  Report Type: 
  Country: None (occurrence: None)
  Receive Date: 20051230
  Receipt Date: 20050705
  Transmission Date: 20060501
  Serious: Yes (Other)
  Sender: FDA-Public Use
  Company Number: US-ROCHE-410012

PATIENT
  Sex: Female

DRUGS (6)
  1. CELLCEPT [Suspect]
     Route: 048
     Dates: end: 20050628
  2. PREDNISONE TAB [Concomitant]
     Indication: RENAL TRANSPLANT
     Route: 048
  3. PROGRAF [Concomitant]
     Indication: RENAL TRANSPLANT
     Route: 048
  4. FOLIC ACID [Concomitant]
     Route: 048
  5. LASIX [Concomitant]
     Route: 048
  6. IMURAN [Concomitant]
     Indication: RENAL TRANSPLANT
     Route: 048

REACTIONS (3)
  - ABORTION SPONTANEOUS [None]
  - DRUG EXPOSURE DURING PREGNANCY [None]
  - PREGNANCY [None]
